FAERS Safety Report 9514755 (Version 1)
Quarter: 2013Q1

REPORT INFORMATION
  Report Type: Spontaneous
  Country: US (occurrence: None)
  Receive Date: 20130305
  Receipt Date: 20130305
  Transmission Date: 20140127
  Serious: Yes (Other)
  Sender: FDA-Public Use
  Company Number: 163-21880-12123130

PATIENT
  Age: 12 Year
  Sex: Male

DRUGS (5)
  1. REVLIMID [Suspect]
     Indication: GLIOBLASTOMA MULTIFORME
     Dosage: 3, 28 - DAY CYCLE, PO
     Route: 048
  2. BEVACIZUMAB (BEVACIZUMAB) [Concomitant]
  3. ERLOTINIB (ERLOTINIB) [Concomitant]
  4. CCNU (LOMUSTINE) [Concomitant]
  5. PROCARBAZINE (PROCARBAZINE) [Concomitant]

REACTIONS (1)
  - Bone marrow failure [None]
